FAERS Safety Report 18908604 (Version 1)
Quarter: 2021Q1

REPORT INFORMATION
  Report Type: Spontaneous
  Country: US (occurrence: US)
  Receive Date: 20210218
  Receipt Date: 20210218
  Transmission Date: 20210420
  Serious: No
  Sender: FDA-Public Use
  Company Number: US-SA-2021SA043923

PATIENT
  Age: 46 Year
  Sex: Female

DRUGS (2)
  1. ENOXAPARIN SODIUM. [Suspect]
     Active Substance: ENOXAPARIN SODIUM
     Indication: THROMBOSIS PROPHYLAXIS
     Dosage: DRUG STRUCTURE DOSAGE : 90 MG DRUG INTERVAL DOSAGE : TWICE DAILY
     Dates: start: 20210129
  2. BABY ASPIRIN [Concomitant]
     Active Substance: ASPIRIN

REACTIONS (13)
  - Thirst [Unknown]
  - Dehydration [Unknown]
  - Asthenia [Unknown]
  - Feeling abnormal [Unknown]
  - Nasal dryness [Unknown]
  - Skin disorder [Unknown]
  - Fatigue [Unknown]
  - Polyuria [Unknown]
  - Dry skin [Unknown]
  - Back pain [Unknown]
  - Hot flush [Unknown]
  - Injection site bruising [Unknown]
  - Pruritus [Unknown]
